FAERS Safety Report 11596284 (Version 1)
Quarter: 2015Q4

REPORT INFORMATION
  Report Type: Spontaneous
  Country: FR (occurrence: FR)
  Receive Date: 20151006
  Receipt Date: 20151006
  Transmission Date: 20160304
  Serious: Yes (Hospitalization)
  Sender: FDA-Public Use
  Company Number: FR-PFIZER INC-2015328730

PATIENT
  Age: 82 Year
  Sex: Female

DRUGS (6)
  1. SOLUPRED [Suspect]
     Active Substance: PREDNISOLONE
     Dosage: UNK
     Route: 048
     Dates: start: 20150810, end: 20150817
  2. FUNGIZONE [Suspect]
     Active Substance: AMPHOTERICIN B
     Indication: ORAL DISCOMFORT
     Dosage: UNK
     Route: 048
     Dates: start: 20150720, end: 20150810
  3. TRIATEC [Concomitant]
     Active Substance: RAMIPRIL
  4. TRIFLUCAN [Suspect]
     Active Substance: FLUCONAZOLE
     Dosage: UNK
     Route: 048
     Dates: start: 20150810, end: 20150817
  5. MYCOSTATINE [Suspect]
     Active Substance: NYSTATIN
     Dosage: UNK
     Route: 048
     Dates: start: 20150810, end: 20150819
  6. STRESAM [Suspect]
     Active Substance: ETIFOXINE
     Dosage: UNK
     Dates: end: 20150819

REACTIONS (5)
  - Pyrexia [Recovered/Resolved]
  - Hepatocellular injury [Recovered/Resolved]
  - Rash [Recovered/Resolved with Sequelae]
  - Lymphadenopathy [Recovered/Resolved]
  - Cholestasis [Recovered/Resolved]

NARRATIVE: CASE EVENT DATE: 20150819
